FAERS Safety Report 5161822-5 (Version None)
Quarter: 2006Q4

REPORT INFORMATION
  Report Type: 
  Country: None (occurrence: None)
  Receive Date: 20061130
  Receipt Date: 20061012
  Transmission Date: 20070319
  Serious: Yes (Death)
  Sender: FDA-Public Use
  Company Number: TW-GILEAD-2006-0010505

PATIENT

DRUGS (2)
  1. HEPSERA [Suspect]
     Indication: HEPATITIS B
  2. LAMIVUDINE [Concomitant]
     Indication: HEPATITIS B

REACTIONS (3)
  - HBV DNA INCREASED [None]
  - HEPATIC FAILURE [None]
  - VIRAL MUTATION IDENTIFIED [None]
